FAERS Safety Report 5792290-8 (Version None)
Quarter: 2008Q2

REPORT INFORMATION
  Report Type: 
  Country: None (occurrence: None)
  Receive Date: 20080626
  Receipt Date: 20080220
  Transmission Date: 20081010
  Serious: No
  Sender: FDA-Public Use
  Company Number: US-ASTRAZENECA-2008UW03462

PATIENT
  Age: 81 Year
  Sex: Female
  Weight: 38.1 kg

DRUGS (6)
  1. PULMICORT RESPULES [Suspect]
     Indication: EMPHYSEMA
     Route: 055
  2. ALBUTEROL [Suspect]
  3. POTASSIUM CHLORIDE [Concomitant]
  4. LASIX [Concomitant]
     Route: 048
  5. ALTACE [Concomitant]
  6. DIGOXIN [Concomitant]
     Route: 048

REACTIONS (2)
  - DYSPNOEA [None]
  - MEDICATION ERROR [None]
